FAERS Safety Report 23185231 (Version 2)
Quarter: 2023Q4

REPORT INFORMATION
  Report Type: Spontaneous
  Country: FR (occurrence: FR)
  Receive Date: 20231115
  Receipt Date: 20231205
  Transmission Date: 20240110
  Serious: Yes (Disabling)
  Sender: FDA-Public Use
  Company Number: FR-ORGANON-O2311FRA000037

PATIENT
  Sex: Female

DRUGS (3)
  1. FOSAVANCE [Suspect]
     Active Substance: ALENDRONATE SODIUM\CHOLECALCIFEROL
     Indication: Osteoporosis
     Dosage: UNK
     Route: 048
     Dates: start: 201803, end: 201908
  2. FOSAVANCE [Suspect]
     Active Substance: ALENDRONATE SODIUM\CHOLECALCIFEROL
     Dosage: UNK
     Route: 048
     Dates: start: 201910, end: 202303
  3. FOSAVANCE [Suspect]
     Active Substance: ALENDRONATE SODIUM\CHOLECALCIFEROL
     Dosage: UNK
     Route: 048
     Dates: start: 202309, end: 202309

REACTIONS (8)
  - Groin pain [Recovering/Resolving]
  - Pain in extremity [Recovering/Resolving]
  - Gait inability [Unknown]
  - Arthralgia [Recovered/Resolved]
  - Headache [Unknown]
  - Malaise [Unknown]
  - Sciatica [Recovered/Resolved]
  - Product availability issue [Unknown]

NARRATIVE: CASE EVENT DATE: 20180101
